FAERS Safety Report 15630262 (Version 1)
Quarter: 2018Q4

REPORT INFORMATION
  Report Type: Spontaneous
  Country: US (occurrence: US)
  Receive Date: 20181117
  Receipt Date: 20181117
  Transmission Date: 20190205
  Serious: Yes (Disabling)
  Sender: FDA-Public Use
  Company Number: None

PATIENT
  Age: 44 Year
  Sex: Female
  Weight: 54 kg

DRUGS (1)
  1. AMPHETAMINE-DEXTROAMPHETAMINE [Suspect]
     Active Substance: AMPHETAMINE SULFATE\DEXTROAMPHETAMINE
     Indication: ATTENTION DEFICIT/HYPERACTIVITY DISORDER
     Dosage: ?          QUANTITY:1 TABLET(S);?
     Route: 048
     Dates: start: 20180706, end: 20181117

REACTIONS (5)
  - Nausea [None]
  - Product substitution issue [None]
  - Pain [None]
  - Feeling abnormal [None]
  - Fatigue [None]

NARRATIVE: CASE EVENT DATE: 20180706
